FAERS Safety Report 5910275-5 (Version None)
Quarter: 2008Q4

REPORT INFORMATION
  Report Type: 
  Country: None (occurrence: None)
  Receive Date: 20081007
  Receipt Date: 20080718
  Transmission Date: 20090506
  Serious: No
  Sender: FDA-Public Use
  Company Number: A0738463A

PATIENT
  Age: 59 Year
  Sex: Male

DRUGS (9)
  1. ADVAIR DISKUS 100/50 [Suspect]
     Indication: ASTHMA
     Dosage: 2SPR TWICE PER DAY
     Route: 055
  2. ADVAIR DISKUS 100/50 [Suspect]
     Dosage: 1PUFF UNKNOWN
     Route: 055
     Dates: start: 20080101
  3. LIPITOR [Concomitant]
  4. HYZAAR [Concomitant]
  5. FLUTICASONE PROPIONATE [Concomitant]
  6. C-PAP [Concomitant]
  7. DOXYCYCLINE [Concomitant]
  8. CLONAZEPAM [Concomitant]
  9. FLOMAX [Concomitant]

REACTIONS (1)
  - DYSPHONIA [None]
